FAERS Safety Report 18457731 (Version 1)
Quarter: 2020Q4

REPORT INFORMATION
  Report Type: Report from Study
  Country: CZ (occurrence: CZ)
  Receive Date: 20201103
  Receipt Date: 20201103
  Transmission Date: 20210114
  Serious: Yes (Other)
  Sender: FDA-Public Use
  Company Number: NVSC2020CZ289252

PATIENT
  Sex: Female

DRUGS (3)
  1. SANDOSTATIN [Suspect]
     Active Substance: OCTREOTIDE ACETATE
     Indication: CARCINOID TUMOUR OF THE CAECUM
     Dosage: 20 UNK, Q4W (28 DAYS)
     Route: 065
     Dates: start: 20090710, end: 20190109
  2. SANDOSTATIN [Suspect]
     Active Substance: OCTREOTIDE ACETATE
  3. SANDOSTATIN [Suspect]
     Active Substance: OCTREOTIDE ACETATE
     Dosage: 20 UNK, Q4W (28 DAYS)
     Route: 065

REACTIONS (6)
  - Bradycardia [Unknown]
  - Malignant neoplasm progression [Unknown]
  - Ileus [Unknown]
  - Circulatory collapse [Unknown]
  - Carcinoid tumour of the caecum [Unknown]
  - Toxicity to various agents [Unknown]

NARRATIVE: CASE EVENT DATE: 2019
